FAERS Safety Report 6090941-4 (Version None)
Quarter: 2009Q1

REPORT INFORMATION
  Report Type: 
  Country: None (occurrence: None)
  Receive Date: 20090220
  Receipt Date: 20090209
  Transmission Date: 20090719
  Serious: Yes (Life-Threatening, Other)
  Sender: FDA-Public Use
  Company Number: MC200900045

PATIENT
  Age: 47 Year
  Sex: Female
  Weight: 57 kg

DRUGS (8)
  1. ANGIOMAX [Suspect]
     Dates: start: 20051201
  2. HEPARIN [Concomitant]
  3. AMIODARONE (AMIODARONE) [Concomitant]
  4. DIGOXIN [Concomitant]
  5. VANCOMYCIN [Concomitant]
  6. UNSPECIFIED VASOPRESSORS [Concomitant]
  7. DIURETICS [Concomitant]
  8. INOTROPIC SOLUTIONS [Concomitant]

REACTIONS (15)
  - ACIDOSIS [None]
  - ANASTOMOTIC HAEMORRHAGE [None]
  - ATRIAL FIBRILLATION [None]
  - CARDIOGENIC SHOCK [None]
  - CONTINUOUS HAEMODIAFILTRATION [None]
  - CRITICAL ILLNESS POLYNEUROPATHY [None]
  - CYANOSIS [None]
  - GANGRENE [None]
  - GENERAL PHYSICAL HEALTH DETERIORATION [None]
  - ISCHAEMIC HEPATITIS [None]
  - PERIPHERAL EMBOLISM [None]
  - PERIPHERAL ISCHAEMIA [None]
  - PULSE ABSENT [None]
  - RENAL IMPAIRMENT [None]
  - THROMBOCYTOPENIA [None]
